FAERS Safety Report 10466288 (Version 2)
Quarter: 2014Q3

REPORT INFORMATION
  Report Type: Spontaneous
  Country: US (occurrence: None)
  Receive Date: 20140918
  Receipt Date: 20140926
  Transmission Date: 20150326
  Serious: Yes (Other)
  Sender: FDA-Public Use
  Company Number: 2014-US-011576

PATIENT
  Age: 31 Year
  Sex: Female

DRUGS (1)
  1. XYREM [Suspect]
     Active Substance: SODIUM OXYBATE
     Indication: NARCOLEPSY
     Route: 048
     Dates: start: 201407, end: 201408

REACTIONS (3)
  - Swelling face [None]
  - Oedema mouth [None]
  - Local swelling [None]

NARRATIVE: CASE EVENT DATE: 201408
